FAERS Safety Report 6988696-1 (Version None)
Quarter: 2010Q3

REPORT INFORMATION
  Report Type: 
  Country: None (occurrence: None)
  Receive Date: 20100916
  Receipt Date: 20100907
  Transmission Date: 20110219
  Serious: Yes (Hospitalization, Other)
  Sender: FDA-Public Use
  Company Number: US-ELI_LILLY_AND_COMPANY-US201009001514

PATIENT
  Sex: Female

DRUGS (2)
  1. BYETTA [Suspect]
     Indication: DIABETES MELLITUS
     Dosage: UNK, 2/D
  2. BYETTA [Suspect]
     Dosage: UNK, 2/D

REACTIONS (3)
  - CARDIAC OPERATION [None]
  - CATHETERISATION CARDIAC [None]
  - OOPHORECTOMY [None]
